FAERS Safety Report 25912684 (Version 1)
Quarter: 2025Q4

REPORT INFORMATION
  Report Type: Spontaneous
  Country: GB (occurrence: GB)
  Receive Date: 20251013
  Receipt Date: 20251013
  Transmission Date: 20260117
  Serious: Yes (Hospitalization, Other)
  Sender: ALEXION PHARMACEUTICALS
  Company Number: None

PATIENT
  Age: 63 Year
  Sex: Female
  Weight: 61 kg

DRUGS (13)
  1. TRUQAP [Suspect]
     Active Substance: CAPIVASERTIB
     Indication: Breast cancer
     Dosage: 400MG TWICE DAILY ON DAYS 1 TO 4 EACH WEEK
  2. CETIRIZINE [Concomitant]
     Active Substance: CETIRIZINE HYDROCHLORIDE
     Indication: Adverse drug reaction
  3. FULVESTRANT [Concomitant]
     Active Substance: FULVESTRANT
     Indication: Adverse drug reaction
  4. LOPERAMIDE [Concomitant]
     Active Substance: LOPERAMIDE
     Indication: Adverse drug reaction
  5. CYCLIZINE [Concomitant]
     Active Substance: CYCLIZINE
     Indication: Adverse drug reaction
  6. FERROUS FUMARATE [Concomitant]
     Active Substance: FERROUS FUMARATE
  7. CALCIUM CARBONATE\CHOLECALCIFEROL [Concomitant]
     Active Substance: CALCIUM CARBONATE\CHOLECALCIFEROL
  8. BECLOMETHASONE DIPROPIONATE\FORMOTEROL FUMARATE [Concomitant]
     Active Substance: BECLOMETHASONE DIPROPIONATE\FORMOTEROL FUMARATE
  9. LANSOPRAZOLE [Concomitant]
     Active Substance: LANSOPRAZOLE
  10. LEVETIRACETAM [Concomitant]
     Active Substance: LEVETIRACETAM
  11. PREGABALIN [Concomitant]
     Active Substance: PREGABALIN
  12. Zerobase [Concomitant]
     Indication: Adverse drug reaction
  13. Paraffin nos;Wool fat [Concomitant]

REACTIONS (9)
  - Hyperglycaemia [Recovered/Resolved]
  - Diabetic ketoacidosis [Recovered/Resolved]
  - Acute kidney injury [Recovering/Resolving]
  - Nausea [Unknown]
  - Dizziness [Unknown]
  - Dry mouth [Unknown]
  - Hypotension [Recovered/Resolved]
  - Hypoglycaemia [Unknown]
  - Decreased appetite [Unknown]

NARRATIVE: CASE EVENT DATE: 20250926
